FAERS Safety Report 13253545 (Version 2)
Quarter: 2021Q1

REPORT INFORMATION
  Report Type: Spontaneous
  Country: US (occurrence: US)
  Receive Date: 20170220
  Receipt Date: 20210120
  Transmission Date: 20210419
  Serious: Yes (Death, Other)
  Sender: FDA-Public Use
  Company Number: US-ACADIA PHARMACEUTICALS INC.-ACA-2017-001910

PATIENT
  Age: 80 Year
  Sex: Male

DRUGS (4)
  1. NUPLAZID [Suspect]
     Active Substance: PIMAVANSERIN TARTRATE
     Indication: HALLUCINATION
     Dosage: 2 TABLETS, QD
     Route: 048
     Dates: start: 2016, end: 20170115
  2. NUPLAZID [Suspect]
     Active Substance: PIMAVANSERIN TARTRATE
     Indication: PARKINSON^S DISEASE
     Dosage: 34 MILLIGRAM, QD
     Route: 048
     Dates: end: 20201205
  3. NUPLAZID [Suspect]
     Active Substance: PIMAVANSERIN TARTRATE
     Indication: PARKINSON^S DISEASE PSYCHOSIS
  4. NUPLAZID [Suspect]
     Active Substance: PIMAVANSERIN TARTRATE
     Indication: DELUSION
     Dosage: 2 TABLETS, QD
     Route: 048
     Dates: start: 20170721

REACTIONS (7)
  - Death [Fatal]
  - Aggression [Unknown]
  - Product dose omission issue [Recovered/Resolved]
  - Hallucination [Unknown]
  - Paranoia [Unknown]
  - Delusion [Unknown]
  - Agitation [Unknown]

NARRATIVE: CASE EVENT DATE: 201701
